FAERS Safety Report 9705793 (Version 2)
Quarter: 2013Q4

REPORT INFORMATION
  Report Type: Spontaneous
  Country: US (occurrence: US)
  Receive Date: 20131122
  Receipt Date: 20131122
  Transmission Date: 20140711
  Serious: No
  Sender: FDA-Public Use
  Company Number: US-GILEAD-2008-0017969

PATIENT
  Age: 90 Year
  Sex: Male
  Weight: 89.36 kg

DRUGS (9)
  1. LETAIRIS [Suspect]
     Indication: PULMONARY ARTERIAL HYPERTENSION
     Route: 048
     Dates: start: 20080813, end: 20080819
  2. FOLIC ACID [Concomitant]
  3. TAZTIA XT [Concomitant]
  4. DIGOXIN [Concomitant]
  5. ATORVASTATIN [Concomitant]
  6. ASPIRIN [Concomitant]
  7. FLOMAX [Concomitant]
  8. SINGULAIR [Concomitant]
  9. REVATIO [Concomitant]

REACTIONS (4)
  - Visual impairment [Recovered/Resolved]
  - Feeling abnormal [Recovered/Resolved]
  - Asthenia [Recovered/Resolved]
  - Dyspnoea [Recovered/Resolved]
